FAERS Safety Report 25075676 (Version 1)
Quarter: 2025Q1

REPORT INFORMATION
  Report Type: Spontaneous
  Country: GB (occurrence: GB)
  Receive Date: 20250313
  Receipt Date: 20250313
  Transmission Date: 20250409
  Serious: Yes (Disabling, Other)
  Sender: GLAXOSMITHKLINE
  Company Number: None

PATIENT

DRUGS (1)
  1. INCRUSE ELLIPTA [Suspect]
     Active Substance: UMECLIDINIUM BROMIDE
     Indication: Asthma late onset
     Route: 065
     Dates: start: 20180207, end: 20250220

REACTIONS (3)
  - Cough [Recovering/Resolving]
  - Product prescribing issue [Unknown]
  - Product use in unapproved indication [Unknown]
